FAERS Safety Report 7725950-X (Version None)
Quarter: 2011Q3

REPORT INFORMATION
  Report Type: 
  Country: None (occurrence: None)
  Receive Date: 20110902
  Receipt Date: 20110826
  Transmission Date: 20111222
  Serious: Yes (Hospitalization)
  Sender: FDA-Public Use
  Company Number: FR-GENZYME-CLOF-1001759

PATIENT
  Sex: Female
  Weight: 66 kg

DRUGS (4)
  1. ORAL CONTRACEPTIVE NOS [Concomitant]
     Indication: METRORRHAGIA
     Dosage: UNK
     Route: 048
  2. FILGRASTIM [Suspect]
     Indication: PRODUCT USED FOR UNKNOWN INDICATION
     Dosage: 330 OTHER, MICRO M
     Route: 042
     Dates: start: 20110712, end: 20110717
  3. CYTARABINE [Suspect]
     Indication: ACUTE MYELOID LEUKAEMIA
     Dosage: 1750 MG, UNK
     Route: 042
     Dates: start: 20110712, end: 20110716
  4. EVOLTRA [Suspect]
     Indication: ACUTE MYELOID LEUKAEMIA
     Dosage: 53 MG, UNK
     Route: 042
     Dates: start: 20110713, end: 20110717

REACTIONS (2)
  - SUBCLAVIAN VEIN THROMBOSIS [None]
  - AXILLARY VEIN THROMBOSIS [None]
